FAERS Safety Report 13020731 (Version 11)
Quarter: 2017Q4

REPORT INFORMATION
  Report Type: Report from Study
  Country: US (occurrence: US)
  Receive Date: 20161212
  Receipt Date: 20171111
  Transmission Date: 20180320
  Serious: Yes (Other)
  Sender: FDA-Public Use
  Company Number: PHEH2016US032172

PATIENT
  Age: 33 Year
  Sex: Female
  Weight: 65 kg

DRUGS (2)
  1. AFINITOR [Suspect]
     Active Substance: EVEROLIMUS
     Dosage: 7.5 MG, QD
     Route: 048
     Dates: start: 20160919
  2. AFINITOR [Suspect]
     Active Substance: EVEROLIMUS
     Indication: ANGIOMYOLIPOMA
     Dosage: 10 MG, QD
     Route: 048
     Dates: start: 201608, end: 20161205

REACTIONS (17)
  - Low density lipoprotein increased [Unknown]
  - Blood cholesterol increased [Unknown]
  - Ulcer [Unknown]
  - Mood swings [Unknown]
  - Decreased appetite [Unknown]
  - Toothache [Unknown]
  - Alanine aminotransferase increased [Recovered/Resolved]
  - Somnolence [Unknown]
  - Hyperlipidaemia [Unknown]
  - Oral pain [Unknown]
  - Amenorrhoea [Unknown]
  - Hyposomnia [Unknown]
  - Menstruation irregular [Recovered/Resolved]
  - Irritability [Unknown]
  - Stomatitis [Unknown]
  - Weight decreased [Unknown]
  - Mouth ulceration [Recovered/Resolved]

NARRATIVE: CASE EVENT DATE: 201609
